FAERS Safety Report 21048750 (Version 1)
Quarter: 2022Q3

REPORT INFORMATION
  Report Type: Spontaneous
  Country: US (occurrence: None)
  Receive Date: 20220706
  Receipt Date: 20220706
  Transmission Date: 20221027
  Serious: No
  Sender: FDA-Public Use
  Company Number: 2022A238861

PATIENT
  Sex: Female

DRUGS (1)
  1. FASENRA [Suspect]
     Active Substance: BENRALIZUMAB
     Indication: Asthma
     Route: 058
     Dates: start: 20211007

REACTIONS (7)
  - Asthma [Not Recovered/Not Resolved]
  - Device issue [Unknown]
  - Device use issue [Unknown]
  - Drug dose omission by device [Unknown]
  - Product preparation error [Unknown]
  - Injury associated with device [Unknown]
  - Haemorrhage [Unknown]
